FAERS Safety Report 17421571 (Version 1)
Quarter: 2020Q1

REPORT INFORMATION
  Report Type: Report from Study
  Country: IT (occurrence: IT)
  Receive Date: 20200214
  Receipt Date: 20200214
  Transmission Date: 20200409
  Serious: Yes (Death, Hospitalization, Other)
  Sender: FDA-Public Use
  Company Number: IT-INCYTE CORPORATION-2020IN001213

PATIENT

DRUGS (1)
  1. JAKAVI [Suspect]
     Active Substance: RUXOLITINIB
     Indication: PRODUCT USED FOR UNKNOWN INDICATION
     Dosage: UNK
     Route: 065
     Dates: end: 201809

REACTIONS (5)
  - Thrombocytopenia [Unknown]
  - Infection [Fatal]
  - Drug ineffective [Unknown]
  - Cerebral haemorrhage [Fatal]
  - Anaemia [Unknown]

NARRATIVE: CASE EVENT DATE: 201809
